FAERS Safety Report 5483336-5 (Version None)
Quarter: 2007Q4

REPORT INFORMATION
  Report Type: 
  Country: None (occurrence: None)
  Receive Date: 20071012
  Receipt Date: 20071005
  Transmission Date: 20080405
  Serious: Yes (Hospitalization)
  Sender: FDA-Public Use
  Company Number: PHFR2007GB02927

PATIENT
  Age: 13 Year

DRUGS (1)
  1. AREDIA [Suspect]
     Indication: OSTEOGENESIS IMPERFECTA
     Dosage: UNK, Q3MO

REACTIONS (1)
  - FRACTURE [None]
